FAERS Safety Report 6792127-4 (Version None)
Quarter: 2010Q2

REPORT INFORMATION
  Report Type: 
  Country: None (occurrence: None)
  Receive Date: 20100624
  Receipt Date: 20080908
  Transmission Date: 20101027
  Serious: No
  Sender: FDA-Public Use
  Company Number: US-PFIZER INC-2008062047

PATIENT
  Sex: Female
  Weight: 20.6 kg

DRUGS (2)
  1. GENOTROPIN [Suspect]
     Indication: GROWTH RETARDATION
     Dosage: FREQUENCY: 1 IN 1 D
     Dates: start: 20070101
  2. VITAMINS [Concomitant]

REACTIONS (1)
  - HEADACHE [None]
